FAERS Safety Report 5268665-2 (Version None)
Quarter: 2007Q1

REPORT INFORMATION
  Report Type: 
  Country: None (occurrence: None)
  Receive Date: 20070315
  Receipt Date: 20070315
  Transmission Date: 20070707
  Serious: Yes (Hospitalization)
  Sender: FDA-Public Use
  Company Number: None

PATIENT
  Sex: Male
  Weight: 128 kg

DRUGS (7)
  1. FAZACLO ODT [Suspect]
     Indication: SCHIZOAFFECTIVE DISORDER
     Dosage: 400 MG -TITRATED DOSE DAILY PO
     Route: 048
     Dates: start: 20070108, end: 20070123
  2. ZIPRASIDONE HCL [Concomitant]
  3. DEPAKOTE ER [Concomitant]
  4. ATROPINE [Concomitant]
  5. DOCUSATE SODIUM [Concomitant]
  6. TOLNAFTATE CREAM [Concomitant]
  7. IBUPROFEN [Concomitant]

REACTIONS (9)
  - ACUTE RESPIRATORY DISTRESS SYNDROME [None]
  - CARDIAC ENZYMES INCREASED [None]
  - HEART RATE INCREASED [None]
  - HYPOXIA [None]
  - PNEUMONIA ASPIRATION [None]
  - PNEUMONIA STAPHYLOCOCCAL [None]
  - SEDATION [None]
  - SEPSIS [None]
  - TROPONIN I INCREASED [None]
